FAERS Safety Report 7774132-4 (Version None)
Quarter: 2011Q3

REPORT INFORMATION
  Report Type: 
  Country: None (occurrence: None)
  Receive Date: 20110923
  Receipt Date: 20110916
  Transmission Date: 20111222
  Serious: No
  Sender: FDA-Public Use
  Company Number: US-JNJFOC-20110102527

PATIENT
  Sex: Male

DRUGS (2)
  1. TYLENOL-500 [Suspect]
     Indication: PAIN
     Route: 048
  2. TYLENOL-500 [Suspect]
     Route: 048

REACTIONS (3)
  - RASH [None]
  - SKIN DISORDER [None]
  - BLISTER [None]
